FAERS Safety Report 4498838-8 (Version None)
Quarter: 2004Q4

REPORT INFORMATION
  Report Type: 
  Country: None (occurrence: None)
  Receive Date: 20041108
  Receipt Date: 20041025
  Transmission Date: 20050328
  Serious: Yes (Hospitalization)
  Sender: FDA-Public Use
  Company Number: 40385410/PHRM2004 FR03133

PATIENT
  Age: 80 Year
  Sex: Male

DRUGS (1)
  1. AK-FLUOR INJECTION, AKORN [Suspect]
     Dosage: 1 DF, ONCE/SINGLE, IV
     Route: 042
     Dates: start: 20040922

REACTIONS (2)
  - CHEST PAIN [None]
  - ELECTROCARDIOGRAM QT PROLONGED [None]
